FAERS Safety Report 8312844-4 (Version None)
Quarter: 2012Q2

REPORT INFORMATION
  Report Type: 
  Country: None (occurrence: None)
  Receive Date: 20120426
  Receipt Date: 20120423
  Transmission Date: 20120825
  Serious: No
  Sender: FDA-Public Use
  Company Number: US-PFIZER INC-2012101684

PATIENT
  Sex: Male
  Weight: 104.31 kg

DRUGS (2)
  1. VIAGRA [Suspect]
     Indication: ERECTILE DYSFUNCTION
     Dosage: 100 MG, 1X/DAY
  2. VIAGRA [Suspect]
     Dosage: 50 MG, 1X/DAY

REACTIONS (1)
  - DRUG EFFECT DECREASED [None]
